FAERS Safety Report 15691743 (Version 1)
Quarter: 2018Q4

REPORT INFORMATION
  Report Type: Spontaneous
  Country: US (occurrence: US)
  Receive Date: 20181205
  Receipt Date: 20181205
  Transmission Date: 20190205
  Serious: Yes (Death)
  Sender: FDA-Public Use
  Company Number: None

PATIENT
  Age: 63 Year
  Sex: Male
  Weight: 101.2 kg

DRUGS (17)
  1. MULTIVITAMIN [Concomitant]
     Active Substance: VITAMINS
     Dates: start: 20061210, end: 20171209
  2. RANOLAZINE (RANEXA) [Concomitant]
     Dates: start: 20061210, end: 20171209
  3. PANTOPRAZOLE TABLETS [Concomitant]
     Active Substance: PANTOPRAZOLE
     Dates: end: 20171209
  4. ALPRAZOLAM. [Concomitant]
     Active Substance: ALPRAZOLAM
     Dates: end: 20171209
  5. ATORVASTATIN [Concomitant]
     Active Substance: ATORVASTATIN
     Dates: start: 20061210, end: 20171209
  6. CYCLOBENZAPRINE. [Concomitant]
     Active Substance: CYCLOBENZAPRINE
     Dates: start: 20160310, end: 20171209
  7. METHOCARBAMOL. [Concomitant]
     Active Substance: METHOCARBAMOL
     Dates: start: 20160310, end: 20171209
  8. PANTOPRAZOLE 80 MG/ 500 ML INFUSION [Concomitant]
     Dates: start: 20171210
  9. NITROGLYCERIN SL TABLETS [Concomitant]
     Dates: start: 20061210, end: 20171209
  10. ONDANSETRON ODT [Concomitant]
     Active Substance: ONDANSETRON
     Dates: end: 20171209
  11. ASPIRIN. [Concomitant]
     Active Substance: ASPIRIN
     Dates: start: 20061210, end: 20171209
  12. HYDROCODONE ER (ZYHYDRO ER) [Concomitant]
     Dates: start: 20160310, end: 20171209
  13. METFORMIN [Concomitant]
     Active Substance: METFORMIN HYDROCHLORIDE
     Dates: start: 20160310, end: 20171209
  14. PROMETHAZINE [Concomitant]
     Active Substance: PROMETHAZINE\PROMETHAZINE HYDROCHLORIDE
     Dates: start: 20171210, end: 20171211
  15. AMLODIPINE [Concomitant]
     Active Substance: AMLODIPINE BESYLATE
     Dates: start: 20061210, end: 20171209
  16. HALOPERIDOL LACTATE. [Suspect]
     Active Substance: HALOPERIDOL LACTATE
     Indication: AGITATION
     Route: 030
     Dates: start: 20171211, end: 20171211
  17. FERRALET 90 [Concomitant]
     Active Substance: ASCORBIC ACID\CYANOCOBALAMIN\DOCUSATE SODIUM\FOLIC ACID\IRON
     Dates: end: 20171209

REACTIONS (2)
  - Cardiac arrest [None]
  - Blood potassium increased [None]

NARRATIVE: CASE EVENT DATE: 20171211
